FAERS Safety Report 23100586 (Version 1)
Quarter: 2023Q4

REPORT INFORMATION
  Report Type: Report from Study
  Country: US (occurrence: US)
  Receive Date: 20231024
  Receipt Date: 20231024
  Transmission Date: 20240110
  Serious: Yes (Life-Threatening, Other)
  Sender: FDA-Public Use
  Company Number: US-PFIZER INC-202300335635

PATIENT
  Age: 66 Year
  Sex: Male

DRUGS (4)
  1. GENTAMICIN SULFATE [Suspect]
     Active Substance: GENTAMICIN SULFATE
     Indication: Bacteraemia
     Dosage: UNK, STARTED ON DAY 1
  2. CEFEPIME [Concomitant]
     Active Substance: CEFEPIME HYDROCHLORIDE
     Indication: Bacteraemia
     Dosage: UNK, STARTED DAY 0
  3. TIGECYCLINE [Concomitant]
     Active Substance: TIGECYCLINE
     Indication: Bacteraemia
     Dosage: 2 UG/ML, ON DAY 12
  4. COLISTIN [Concomitant]
     Active Substance: COLISTIN
     Indication: Bacteraemia
     Dosage: 64 UG/ML

REACTIONS (1)
  - Infection [Unknown]
